FAERS Safety Report 7032515-4 (Version None)
Quarter: 2010Q4

REPORT INFORMATION
  Report Type: 
  Country: None (occurrence: None)
  Receive Date: 20101007
  Receipt Date: 20100929
  Transmission Date: 20110411
  Serious: Yes (Other)
  Sender: FDA-Public Use
  Company Number: DK-JNJFOC-20100907578

PATIENT

DRUGS (2)
  1. DOXORUBICIN HYDROCHLORIDE [Suspect]
     Indication: OVARIAN CANCER
     Route: 042
  2. GEMCITABINE [Suspect]
     Indication: OVARIAN CANCER
     Dosage: 6 COURSES, EVERY 3-4 WEEKS 650 } 1,000 MG.M2 WITH ESCALATION TO 1000MG/M2 FROM COURSE 2

REACTIONS (1)
  - DYSPNOEA [None]
